FAERS Safety Report 5171601-0 (Version None)
Quarter: 2006Q4

REPORT INFORMATION
  Report Type: 
  Country: None (occurrence: None)
  Receive Date: 20061205
  Receipt Date: 20061121
  Transmission Date: 20070319
  Serious: Yes (Hospitalization, Other)
  Sender: FDA-Public Use
  Company Number: 2006022569

PATIENT
  Age: 39 Year
  Sex: Male
  Weight: 99.3377 kg

DRUGS (9)
  1. NEURONTIN [Suspect]
     Indication: COMPLEX REGIONAL PAIN SYNDROME
     Dosage: 900 MG (300 MG, 2 IN 1 D), ORAL
     Route: 048
     Dates: start: 20040601, end: 20050201
  2. NEURONTIN [Suspect]
     Indication: NEUROPATHY PERIPHERAL
     Dosage: 900 MG (300 MG, 2 IN 1 D), ORAL
     Route: 048
     Dates: start: 20040601, end: 20050201
  3. TRAZODONE HCL [Concomitant]
  4. EFFEXOR [Concomitant]
  5. LEXAPRO [Concomitant]
  6. FIORICET [Concomitant]
  7. LORTAB [Concomitant]
  8. SONATA [Concomitant]
  9. PAMELOR [Concomitant]

REACTIONS (11)
  - DEPRESSION [None]
  - DRUG DEPENDENCE [None]
  - DRUG INEFFECTIVE [None]
  - FEELING ABNORMAL [None]
  - GUN SHOT WOUND [None]
  - MEDIAN NERVE INJURY [None]
  - OSTEOMYELITIS [None]
  - RADIUS FRACTURE [None]
  - SUICIDAL IDEATION [None]
  - SUICIDE ATTEMPT [None]
  - TENDON INJURY [None]
